FAERS Safety Report 4896854-5 (Version None)
Quarter: 2005Q4

REPORT INFORMATION
  Report Type: 
  Country: None (occurrence: None)
  Receive Date: 20051228
  Receipt Date: 20051013
  Transmission Date: 20060501
  Serious: Yes (Hospitalization, Other)
  Sender: FDA-Public Use
  Company Number: USA0510110773

PATIENT
  Age: 43 Year
  Sex: Female
  Weight: 122 kg

DRUGS (2)
  1. HUMULIN 70/30 [Suspect]
  2. HUMALOG MIX 75/25 [Suspect]
     Dosage: 45 U/2 DAY
     Dates: start: 20030101

REACTIONS (2)
  - BENIGN INTRACRANIAL HYPERTENSION [None]
  - INJECTION SITE PAIN [None]
